FAERS Safety Report 9699597 (Version 1)
Quarter: 2013Q4

REPORT INFORMATION
  Report Type: Spontaneous
  Country: US (occurrence: US)
  Receive Date: 20131120
  Receipt Date: 20131120
  Transmission Date: 20140711
  Serious: No
  Sender: FDA-Public Use
  Company Number: US-TEVA-370996USA

PATIENT
  Age: 21 Year
  Sex: Female

DRUGS (1)
  1. PARAGARD 380A [Suspect]
     Indication: CONTRACEPTION
     Route: 015

REACTIONS (6)
  - Pregnancy with contraceptive device [Unknown]
  - Drug ineffective [Unknown]
  - Vaginal haemorrhage [Unknown]
  - Pelvic pain [Unknown]
  - Uterine spasm [Unknown]
  - Medical device complication [Unknown]
